FAERS Safety Report 7207359-0 (Version None)
Quarter: 2011Q1

REPORT INFORMATION
  Report Type: 
  Country: None (occurrence: None)
  Receive Date: 20110103
  Receipt Date: 20101223
  Transmission Date: 20110831
  Serious: Yes (Other)
  Sender: FDA-Public Use
  Company Number: CA-PFIZER INC-2010178591

PATIENT

DRUGS (1)
  1. SIROLIMUS [Suspect]

REACTIONS (1)
  - DEMENTIA [None]
